FAERS Safety Report 4953871-4 (Version None)
Quarter: 2006Q1

REPORT INFORMATION
  Report Type: 
  Country: None (occurrence: None)
  Receive Date: 20060321
  Receipt Date: 20060307
  Transmission Date: 20060701
  Serious: Yes (Death)
  Sender: FDA-Public Use
  Company Number: 2006P1000149

PATIENT
  Age: 74 Year
  Sex: Male
  Weight: 70.4 kg

DRUGS (8)
  1. RETEVASE [Suspect]
     Indication: ACUTE MYOCARDIAL INFARCTION
     Dosage: IV
     Route: 042
     Dates: start: 20041007
  2. ABCIXIMAB [Suspect]
     Indication: ACUTE MYOCARDIAL INFARCTION
     Dosage: IV
     Route: 042
     Dates: start: 20041007
  3. DOBUTAMINE HCL [Concomitant]
  4. ROCEPHIN [Concomitant]
  5. LASIX [Concomitant]
  6. COREG [Concomitant]
  7. VASOTEC [Concomitant]
  8. SPIRONOLACTONE [Concomitant]

REACTIONS (21)
  - ACUTE PRERENAL FAILURE [None]
  - AGGRESSION [None]
  - AGITATION [None]
  - BLOOD ALBUMIN DECREASED [None]
  - BLOOD CALCIUM DECREASED [None]
  - BLOOD GLUCOSE INCREASED [None]
  - BUNDLE BRANCH BLOCK LEFT [None]
  - CARDIAC FAILURE CONGESTIVE [None]
  - CARDIO-RESPIRATORY ARREST [None]
  - CARDIOMEGALY [None]
  - CONDITION AGGRAVATED [None]
  - DEHYDRATION [None]
  - FALL [None]
  - HAEMOGLOBIN DECREASED [None]
  - HYPOTENSION [None]
  - MENTAL STATUS CHANGES [None]
  - NEUTROPHIL PERCENTAGE INCREASED [None]
  - PLEURAL EFFUSION [None]
  - RENAL FAILURE CHRONIC [None]
  - URINARY TRACT INFECTION [None]
  - WHITE BLOOD CELL COUNT INCREASED [None]
